FAERS Safety Report 7096278-9 (Version None)
Quarter: 2010Q4

REPORT INFORMATION
  Report Type: 
  Country: None (occurrence: None)
  Receive Date: 20101103
  Receipt Date: 20101026
  Transmission Date: 20110411
  Serious: Yes (Other)
  Sender: FDA-Public Use
  Company Number: 2010JP006216

PATIENT
  Age: 46 Year
  Sex: Male

DRUGS (6)
  1. PROGRAF [Suspect]
     Indication: RENAL TRANSPLANT
  2. MYCOPHENOLATE MOFETIL [Concomitant]
  3. PREDNISOLONE [Concomitant]
  4. RITUXIMAB (RITUXIMAB) [Concomitant]
  5. BASILIXIMAB (BASILIXIMAB) [Concomitant]
  6. IMMUNE GLOBULIN (HUMAN) [Concomitant]

REACTIONS (1)
  - THROMBOTIC MICROANGIOPATHY [None]
